FAERS Safety Report 5626874-4 (Version None)
Quarter: 2008Q1

REPORT INFORMATION
  Report Type: 
  Country: None (occurrence: None)
  Receive Date: 20080214
  Receipt Date: 20020827
  Transmission Date: 20080703
  Serious: Yes (Other)
  Sender: FDA-Public Use
  Company Number: US-MERCK-0206USA02069

PATIENT
  Age: 67 Year
  Sex: Female

DRUGS (11)
  1. FOSAMAX [Suspect]
     Indication: OSTEOPOROSIS
     Route: 048
     Dates: start: 20020610, end: 20020617
  2. PRILOSEC [Concomitant]
     Route: 065
     Dates: start: 19950101
  3. CLARITIN [Concomitant]
     Route: 065
     Dates: start: 19980101
  4. SYNTHROID [Concomitant]
     Route: 065
     Dates: start: 19520101
  5. DIURIL [Concomitant]
     Route: 048
     Dates: start: 19770101
  6. PREMPRO [Concomitant]
     Route: 065
     Dates: start: 19910101
  7. ESTRATEST H.S. [Concomitant]
     Route: 065
  8. ASPIRIN [Concomitant]
     Route: 065
     Dates: start: 19950101
  9. [THERAPY UNSPECIFIED] [Concomitant]
     Dates: start: 19950101
  10. FLONASE [Concomitant]
     Dates: start: 19980101
  11. BENADRYL [Concomitant]
     Route: 065
     Dates: start: 19520101

REACTIONS (6)
  - ARTHRALGIA [None]
  - BONE PAIN [None]
  - GAIT DISTURBANCE [None]
  - INFLAMMATION [None]
  - MYALGIA [None]
  - PYREXIA [None]
